FAERS Safety Report 7150174-7 (Version None)
Quarter: 2010Q4

REPORT INFORMATION
  Report Type: 
  Country: None (occurrence: None)
  Receive Date: 20101210
  Receipt Date: 20101203
  Transmission Date: 20110411
  Serious: Yes (Other)
  Sender: FDA-Public Use
  Company Number: GB-BRISTOL-MYERS SQUIBB COMPANY-15410616

PATIENT
  Age: 53 Year
  Sex: Male

DRUGS (6)
  1. DIDANOSINE [Suspect]
     Indication: HIV INFECTION
     Dates: start: 19970101, end: 20050101
  2. ZIDOVUDINE [Suspect]
     Indication: HIV INFECTION
     Dates: start: 19970101, end: 20050101
  3. NEVIRAPINE [Suspect]
     Indication: HIV INFECTION
     Dates: start: 19970101, end: 20050101
  4. TENOFOVIR DISOPROXIL FUMARATE [Suspect]
     Indication: HIV INFECTION
  5. LAMIVUDINE [Suspect]
     Indication: HIV INFECTION
  6. TRUVADA [Suspect]
     Indication: HIV INFECTION

REACTIONS (2)
  - NODULAR REGENERATIVE HYPERPLASIA [None]
  - OESOPHAGEAL VARICES HAEMORRHAGE [None]
